FAERS Safety Report 6729576-6 (Version None)
Quarter: 2010Q2

REPORT INFORMATION
  Report Type: 
  Country: None (occurrence: None)
  Receive Date: 20100518
  Receipt Date: 20100506
  Transmission Date: 20101027
  Serious: No
  Sender: FDA-Public Use
  Company Number: 2009BI032085

PATIENT
  Age: 36 Year
  Sex: Male

DRUGS (1)
  1. TYSABRI [Suspect]
     Indication: MULTIPLE SCLEROSIS
     Route: 042
     Dates: start: 20090827

REACTIONS (7)
  - CHEILITIS [None]
  - DRY MOUTH [None]
  - FATIGUE [None]
  - LIP DISCOLOURATION [None]
  - LIP SWELLING [None]
  - MUSCULAR WEAKNESS [None]
  - OEDEMA MOUTH [None]
